FAERS Safety Report 5442027-7 (Version None)
Quarter: 2007Q3

REPORT INFORMATION
  Report Type: 
  Country: None (occurrence: None)
  Receive Date: 20070904
  Receipt Date: 20070824
  Transmission Date: 20080115
  Serious: Yes (Hospitalization)
  Sender: FDA-Public Use
  Company Number: IT-ROCHE-409930

PATIENT
  Age: 54 Year
  Sex: Male

DRUGS (4)
  1. DACLIZUMAB [Suspect]
     Route: 065
     Dates: start: 20050512, end: 20050512
  2. DACLIZUMAB [Suspect]
     Route: 065
     Dates: start: 20050519, end: 20050519
  3. TACROLIMUS [Suspect]
     Route: 048
     Dates: start: 20050512
  4. MYCOPHENOLATE MOFETIL [Concomitant]
     Dates: start: 20050527

REACTIONS (2)
  - BILE DUCT STENOSIS [None]
  - HEPATITIS C [None]
